FAERS Safety Report 16197899 (Version 1)
Quarter: 2019Q2

REPORT INFORMATION
  Report Type: Spontaneous
  Country: US (occurrence: US)
  Receive Date: 20190312
  Receipt Date: 20190312
  Transmission Date: 20190711
  Serious: No
  Sender: FDA-Public Use
  Company Number: None

PATIENT
  Sex: Female

DRUGS (1)
  1. GLATIRAMER ACETATE (12X1ML) 40MG/ML MYLAN [Suspect]
     Active Substance: GLATIRAMER ACETATE
     Indication: MULTIPLE SCLEROSIS
     Dosage: 40MG/ML 3 TIMES A WEEK SUBCUTANEOUSLY
     Route: 058
     Dates: start: 201902

REACTIONS (2)
  - Injection site vesicles [None]
  - Injection site pain [None]
